FAERS Safety Report 25954162 (Version 1)
Quarter: 2025Q4

REPORT INFORMATION
  Report Type: Spontaneous
  Country: CN (occurrence: CN)
  Receive Date: 20251023
  Receipt Date: 20251023
  Transmission Date: 20260118
  Serious: Yes (Other)
  Sender: MERCK SHARP & DOHME LLC
  Company Number: CN-009507513-2339765

PATIENT
  Age: 68 Year
  Sex: Female
  Weight: 53.5 kg

DRUGS (6)
  1. KEYTRUDA [Suspect]
     Active Substance: PEMBROLIZUMAB
     Indication: Lung neoplasm malignant
     Dosage: FREQ: ONCE (ALSO REPORTED AS ONCE DAILY [QD])
     Route: 041
     Dates: start: 20250929, end: 20250929
  2. CARBOPLATIN [Suspect]
     Active Substance: CARBOPLATIN
     Indication: Lung neoplasm malignant
     Dosage: FREQUENCY: ONCE (ALSO REPORTED AS ONCE DAILY [QD])
     Route: 041
     Dates: start: 20250929, end: 20250929
  3. PACLITAXEL [Suspect]
     Active Substance: PACLITAXEL
     Indication: Lung neoplasm malignant
     Dosage: FREQUENCY: ONCE (ALSO REPORTED AS ONCE DAILY [QD])
     Route: 041
     Dates: start: 20250929, end: 20250929
  4. SODIUM CHLORIDE [Concomitant]
     Active Substance: SODIUM CHLORIDE
     Dosage: 0.9%; FREQ: ONCE (ALSO REPORTED AS ONCE DAILY [QD]); INDICATION: SOLVENT
     Route: 041
     Dates: start: 20250929, end: 20250929
  5. SODIUM CHLORIDE [Concomitant]
     Active Substance: SODIUM CHLORIDE
     Dosage: 0.9%; FREQ: ONCE (ALSO REPORTED AS ONCE DAILY [QD]); INDICATION: SOLVENT
     Route: 041
     Dates: start: 20250929, end: 20250929
  6. SODIUM CHLORIDE [Concomitant]
     Active Substance: SODIUM CHLORIDE
     Dosage: 0.9%; FREQ: ONCE (ALSO REPORTED AS ONCE DAILY [QD]); INDICATION: SOLVENT
     Route: 041
     Dates: start: 20250929, end: 20250929

REACTIONS (2)
  - White blood cell count decreased [Unknown]
  - Neutrophil count decreased [Unknown]

NARRATIVE: CASE EVENT DATE: 20251003
